FAERS Safety Report 7829855-5 (Version None)
Quarter: 2011Q4

REPORT INFORMATION
  Report Type: 
  Country: None (occurrence: None)
  Receive Date: 20111018
  Receipt Date: 20111003
  Transmission Date: 20120403
  Serious: Yes (Other)
  Sender: FDA-Public Use
  Company Number: CA-ACCORD-010928

PATIENT
  Sex: Female

DRUGS (4)
  1. METFORMIN HCL [Concomitant]
  2. TOPIRAMATE [Suspect]
     Indication: STATUS EPILEPTICUS
     Dosage: 100.00-MG-2.00 TIMES PER-1.0DAYS
     Dates: start: 20100616
  3. PHENYTOIN [Concomitant]
  4. LEVETIRACETAM(LEVETIRACETAM0 [Concomitant]

REACTIONS (10)
  - CHRONIC OBSTRUCTIVE PULMONARY DISEASE [None]
  - GLYCOSYLATED HAEMOGLOBIN INCREASED [None]
  - CONVULSION [None]
  - ANAEMIA [None]
  - DRUG LEVEL DECREASED [None]
  - WEIGHT DECREASED [None]
  - BLOOD GLUCOSE DECREASED [None]
  - STATUS EPILEPTICUS [None]
  - PNEUMONIA [None]
  - HAEMOGLOBINOPATHY [None]
